FAERS Safety Report 17892693 (Version 3)
Quarter: 2020Q3

REPORT INFORMATION
  Report Type: Spontaneous
  Country: US (occurrence: US)
  Receive Date: 20200613
  Receipt Date: 20200804
  Transmission Date: 20201103
  Serious: No
  Sender: FDA-Public Use
  Company Number: US-B.I. PHARMACEUTICALS,INC./RIDGEFIELD-2020-US-028662

PATIENT
  Age: 80 Year
  Sex: Female

DRUGS (1)
  1. STIOLTO RESPIMAT [Suspect]
     Active Substance: OLODATEROL HYDROCHLORIDE\TIOTROPIUM BROMIDE MONOHYDRATE
     Indication: DYSPNOEA
     Dosage: 2 SPRAYS DAILY
     Route: 065
     Dates: start: 20200605

REACTIONS (4)
  - Coating in mouth [Not Recovered/Not Resolved]
  - Dysphagia [Unknown]
  - Coating in mouth [Unknown]
  - Product quality issue [Unknown]

NARRATIVE: CASE EVENT DATE: 20200605
